FAERS Safety Report 10035162 (Version 1)
Quarter: 2014Q1

REPORT INFORMATION
  Report Type: Spontaneous
  Country: US (occurrence: None)
  Receive Date: 20140306
  Receipt Date: 20140306
  Transmission Date: 20141002
  Serious: Yes (Other)
  Sender: FDA-Public Use
  Company Number: 163-21880-13123857

PATIENT
  Age: 71 Year
  Sex: Male

DRUGS (6)
  1. REVLIMID [Suspect]
     Indication: PLASMA CELL MYELOMA
     Dosage: 10 MG, 21 IN 28 D, PO
     Route: 048
     Dates: start: 20131015
  2. AMLODIPINE BESYLATE (AMLODIPINE BESILATE) [Concomitant]
  3. GLYBURIDE-METFORMIN (GLIBOMET) [Concomitant]
  4. ACYCLOVIR (ACICLOVIR) (ACICLOVIR) [Concomitant]
  5. WARFARIN (WARFARIN) [Concomitant]
  6. CALCIUM 600 PLUS VITAMIN D (CALCIUM D3 ^STADA^) [Concomitant]

REACTIONS (1)
  - Skin discolouration [None]
